FAERS Safety Report 8558675-1 (Version None)
Quarter: 2012Q3

REPORT INFORMATION
  Report Type: 
  Country: None (occurrence: None)
  Receive Date: 20120801
  Receipt Date: 20120723
  Transmission Date: 20120928
  Serious: Yes (Other)
  Sender: FDA-Public Use
  Company Number: US-009507513-1207USA010543

PATIENT

DRUGS (2)
  1. ZOCOR [Suspect]
  2. OFLOXACIN [Suspect]
     Route: 048

REACTIONS (1)
  - MUSCULOSKELETAL PAIN [None]
